FAERS Safety Report 16498726 (Version 1)
Quarter: 2019Q2

REPORT INFORMATION
  Report Type: Spontaneous
  Country: GB (occurrence: GB)
  Receive Date: 20190630
  Receipt Date: 20190630
  Transmission Date: 20190711
  Serious: Yes (Hospitalization, Other)
  Sender: FDA-Public Use
  Company Number: GB-AMGEN-GBRSP2019102939

PATIENT
  Age: 66 Year
  Sex: Male

DRUGS (5)
  1. MEBEVERINE [Concomitant]
     Active Substance: MEBEVERINE
     Dosage: 400 MILLIGRAM, QD
  2. METHOTREXATE. [Concomitant]
     Active Substance: METHOTREXATE
     Dosage: 5 MG, WEEKLY (LONG TERM (AT LEAST 12 YEARS))
     Route: 048
     Dates: end: 20190321
  3. FOLIC ACID. [Concomitant]
     Active Substance: FOLIC ACID
     Dosage: 5 MG, WEEKLY
  4. ENBREL [Suspect]
     Active Substance: ETANERCEPT
     Indication: ANKYLOSING SPONDYLITIS
     Dosage: 50 MG, WEEKLY
     Route: 058
     Dates: start: 20090101, end: 20190321
  5. OMEPRAZOLE. [Concomitant]
     Active Substance: OMEPRAZOLE
     Dosage: 20 MILLIGRAM, QD

REACTIONS (5)
  - Productive cough [Unknown]
  - Abnormal loss of weight [Unknown]
  - Pleural effusion [Unknown]
  - B-cell lymphoma [Unknown]
  - Joint effusion [Unknown]

NARRATIVE: CASE EVENT DATE: 20190503
